FAERS Safety Report 7527623-5 (Version None)
Quarter: 2011Q2

REPORT INFORMATION
  Report Type: 
  Country: None (occurrence: None)
  Receive Date: 20110607
  Receipt Date: 20110530
  Transmission Date: 20111010
  Serious: Yes (Other)
  Sender: FDA-Public Use
  Company Number: JP-JNJFOC-20110105099

PATIENT
  Age: 56 Year
  Sex: Male

DRUGS (4)
  1. DOGMATYL [Concomitant]
     Route: 048
  2. RISPERDAL [Suspect]
     Indication: INSOMNIA
     Route: 048
  3. ROHYPNOL [Concomitant]
     Route: 065
  4. SEPAZON [Concomitant]
     Route: 048

REACTIONS (11)
  - MICTURITION FREQUENCY DECREASED [None]
  - POLLAKIURIA [None]
  - MALAISE [None]
  - DECREASED APPETITE [None]
  - WEIGHT DECREASED [None]
  - GLYCOSYLATED HAEMOGLOBIN INCREASED [None]
  - DRUG INEFFECTIVE FOR UNAPPROVED INDICATION [None]
  - ABDOMINAL DISCOMFORT [None]
  - INSOMNIA [None]
  - OFF LABEL USE [None]
  - ABDOMINAL PAIN [None]
